FAERS Safety Report 9341568 (Version 1)
Quarter: 2013Q2

REPORT INFORMATION
  Report Type: Spontaneous
  Country: US (occurrence: None)
  Receive Date: 20130530
  Receipt Date: 20130530
  Transmission Date: 20140414
  Serious: Yes (Other)
  Sender: FDA-Public Use
  Company Number: 2013035775

PATIENT
  Age: 76 Year
  Sex: Female

DRUGS (2)
  1. ALBURMINAR [Suspect]
     Indication: AORTIC VALVE REPLACEMENT
     Dosage: 12.5 G/250 ML/X4, NI, NI, NI, NI
     Route: 042
     Dates: start: 20130425, end: 20130425
  2. LIDOCAINE (LIDOCAINE) [Suspect]

REACTIONS (2)
  - Anaphylactic shock [None]
  - Erythema [None]
